FAERS Safety Report 8046501-9 (Version None)
Quarter: 2012Q1

REPORT INFORMATION
  Report Type: 
  Country: None (occurrence: None)
  Receive Date: 20120113
  Receipt Date: 20120106
  Transmission Date: 20120608
  Serious: Yes (Hospitalization, Disabling, Other)
  Sender: FDA-Public Use
  Company Number: US-ABBOTT-12P-163-0890147-00

PATIENT
  Sex: Male
  Weight: 97.61 kg

DRUGS (4)
  1. LISINOPRIL [Concomitant]
     Indication: HYPERTENSION
  2. HUMIRA [Suspect]
     Route: 058
     Dates: start: 20090101
  3. METFORMIN HCL [Concomitant]
     Indication: DIABETES MELLITUS
  4. HUMIRA [Suspect]
     Indication: RHEUMATOID ARTHRITIS
     Dosage: PFS, ONCE EVERY TWO WEEKS
     Route: 058
     Dates: start: 20020101, end: 20090101

REACTIONS (11)
  - HEMIPLEGIA [None]
  - MONOPARESIS [None]
  - PARAESTHESIA [None]
  - EXOSTOSIS [None]
  - BLOOD CHOLESTEROL INCREASED [None]
  - FALL [None]
  - DYSARTHRIA [None]
  - SCAR [None]
  - CEREBROVASCULAR ACCIDENT [None]
  - CEREBRAL HAEMORRHAGE [None]
  - ABASIA [None]
